FAERS Safety Report 24145559 (Version 1)
Quarter: 2024Q3

REPORT INFORMATION
  Report Type: Spontaneous
  Country: DE (occurrence: DE)
  Receive Date: 20240729
  Receipt Date: 20240729
  Transmission Date: 20241017
  Serious: Yes (Disabling)
  Sender: BOEHRINGER INGELHEIM
  Company Number: DE-DCGMA-24203705

PATIENT
  Age: 68 Year
  Sex: Male
  Weight: 86 kg

DRUGS (5)
  1. OFEV [Suspect]
     Active Substance: NINTEDANIB
     Indication: Rheumatic disorder
     Route: 048
     Dates: start: 20240504
  2. OFEV [Suspect]
     Active Substance: NINTEDANIB
     Indication: Pulmonary fibrosis
  3. METHOTREXATE SODIUM [Concomitant]
     Active Substance: METHOTREXATE SODIUM
     Indication: Rheumatic disorder
     Route: 048
  4. HYRIMOZ [Concomitant]
     Active Substance: ADALIMUMAB-ADAZ
     Indication: Rheumatic disorder
     Route: 058
  5. PREDNISOLONE [Concomitant]
     Active Substance: PREDNISOLONE
     Indication: Rheumatic disorder
     Route: 048

REACTIONS (7)
  - Abdominal pain upper [Recovering/Resolving]
  - Weight decreased [Recovering/Resolving]
  - Diarrhoea [Recovering/Resolving]
  - Nausea [Recovering/Resolving]
  - Gastrointestinal pain [Recovering/Resolving]
  - Depressed mood [Recovering/Resolving]
  - Ageusia [Not Recovered/Not Resolved]

NARRATIVE: CASE EVENT DATE: 20240611
